FAERS Safety Report 5835145-2 (Version None)
Quarter: 2008Q3

REPORT INFORMATION
  Report Type: 
  Country: None (occurrence: None)
  Receive Date: 20080805
  Receipt Date: 20080805
  Transmission Date: 20090109
  Serious: Yes (Other)
  Sender: FDA-Public Use
  Company Number: None

PATIENT
  Age: 63 Year
  Sex: Female
  Weight: 97.977 kg

DRUGS (1)
  1. BONIVA [Suspect]
     Indication: OSTEOPENIA
     Dosage: 1 MONTHLY PO
     Route: 048
     Dates: start: 20080222, end: 20080522

REACTIONS (6)
  - ABASIA [None]
  - ARTHRALGIA [None]
  - BACK PAIN [None]
  - DISCOMFORT [None]
  - MOVEMENT DISORDER [None]
  - SYNOVIAL CYST [None]
